FAERS Safety Report 9852894 (Version 1)
Quarter: 2014Q1

REPORT INFORMATION
  Report Type: Spontaneous
  Country: CA (occurrence: CA)
  Receive Date: 20140129
  Receipt Date: 20140129
  Transmission Date: 20141002
  Serious: Yes (Death)
  Sender: FDA-Public Use
  Company Number: CA-PFIZER INC-2014024372

PATIENT
  Age: 83 Year
  Sex: Male

DRUGS (2)
  1. INLYTA [Suspect]
     Indication: RENAL CELL CARCINOMA
     Dosage: 5 MG, CYCLIC
     Dates: start: 20121128
  2. INLYTA [Suspect]
     Dosage: 3 MG, 2X/DAY, CYCLIC

REACTIONS (1)
  - Death [Fatal]
